FAERS Safety Report 11468147 (Version 1)
Quarter: 2015Q3

REPORT INFORMATION
  Report Type: Spontaneous
  Country: US (occurrence: US)
  Receive Date: 20150908
  Receipt Date: 20150908
  Transmission Date: 20151125
  Serious: Yes (Other)
  Sender: FDA-Public Use
  Company Number: US-BAYER-2015-411963

PATIENT
  Age: 60 Year
  Sex: Female

DRUGS (1)
  1. SKYLA [Suspect]
     Active Substance: LEVONORGESTREL
     Indication: ENDOMETRIAL HYPERPLASIA
     Dosage: UNK
     Route: 015
     Dates: start: 20150819

REACTIONS (2)
  - Hyperkalaemia [None]
  - Off label use [None]

NARRATIVE: CASE EVENT DATE: 201508
